FAERS Safety Report 15662355 (Version 1)
Quarter: 2018Q4

REPORT INFORMATION
  Report Type: Report from Study
  Country: JP (occurrence: JP)
  Receive Date: 20181127
  Receipt Date: 20181127
  Transmission Date: 20190205
  Serious: Yes (Hospitalization, Other)
  Sender: FDA-Public Use
  Company Number: JP-GE HEALTHCARE LIFE SCIENCES-2017CSU003990

PATIENT

DRUGS (7)
  1. NICERGOLINE [Concomitant]
     Active Substance: NICERGOLINE
     Indication: CEREBROVASCULAR ACCIDENT PROPHYLAXIS
     Dosage: 15 MG, TID
     Route: 048
     Dates: start: 2009
  2. KETOPROFEN. [Concomitant]
     Active Substance: KETOPROFEN
     Indication: BACK PAIN
     Dosage: 20 MG, PRN
     Route: 061
     Dates: start: 2010
  3. ADUCANUMAB [Suspect]
     Active Substance: ADUCANUMAB
     Indication: DEMENTIA ALZHEIMER^S TYPE
     Dosage: UNK
     Dates: start: 20161226
  4. MAGNESIUM OXIDE. [Concomitant]
     Active Substance: MAGNESIUM OXIDE
     Indication: CONSTIPATION
     Dosage: 1330 MG, PRN
     Route: 048
     Dates: start: 2014
  5. VIZAMYL [Suspect]
     Active Substance: FLUTEMETAMOL F-18
     Indication: DEMENTIA ALZHEIMER^S TYPE
     Dosage: UNK, SINGLE
     Route: 065
     Dates: start: 20161215, end: 20161215
  6. VIZAMYL [Suspect]
     Active Substance: FLUTEMETAMOL F-18
     Dosage: UNK, SINGLE
     Route: 065
     Dates: start: 20170629, end: 20170629
  7. BIO-THREE [Concomitant]
     Active Substance: HERBALS
     Indication: CONSTIPATION
     Dosage: 1 TABLET, BID
     Route: 048
     Dates: start: 2014, end: 20180723

REACTIONS (2)
  - Complicated fracture [Recovered/Resolved]
  - Fall [Recovered/Resolved]

NARRATIVE: CASE EVENT DATE: 20171112
